FAERS Safety Report 17163974 (Version 1)
Quarter: 2019Q4

REPORT INFORMATION
  Report Type: Report from Study
  Country: AR (occurrence: AR)
  Receive Date: 20191217
  Receipt Date: 20191217
  Transmission Date: 20200122
  Serious: Yes (Other)
  Sender: FDA-Public Use
  Company Number: AR-ULTRAGENYX PHARMACEUTICAL INC.-AR-UGNX-19-00188

PATIENT
  Age: 13 Year
  Sex: Male

DRUGS (2)
  1. MEPSEVII [Suspect]
     Active Substance: VESTRONIDASE ALFA-VJBK
     Dosage: 4 MG/KG
     Dates: start: 20191119
  2. MEPSEVII [Suspect]
     Active Substance: VESTRONIDASE ALFA-VJBK
     Indication: MUCOPOLYSACCHARIDOSIS VII
     Dosage: 4 MG/KG
     Dates: start: 201907

REACTIONS (6)
  - Pyrexia [Unknown]
  - Upper limb fracture [Unknown]
  - Oropharyngeal pain [Unknown]
  - Cough [Unknown]
  - Secretion discharge [Unknown]
  - Fall [Unknown]

NARRATIVE: CASE EVENT DATE: 20191130
